FAERS Safety Report 11638097 (Version 3)
Quarter: 2015Q4

REPORT INFORMATION
  Report Type: Report from Study
  Country: US (occurrence: US)
  Receive Date: 20151016
  Receipt Date: 20151207
  Transmission Date: 20160304
  Serious: Yes (Other)
  Sender: FDA-Public Use
  Company Number: US-AMGEN-USASL2015105577

PATIENT
  Age: 68 Year
  Sex: Female

DRUGS (4)
  1. ASPIRIN                            /00002701/ [Suspect]
     Active Substance: ASPIRIN
     Indication: ARTHRALGIA
     Dosage: UNK
     Route: 065
  2. CELEBREX [Suspect]
     Active Substance: CELECOXIB
     Indication: ARTHRALGIA
     Dosage: UNK
     Route: 065
  3. OMEPRAZOLE. [Concomitant]
     Active Substance: OMEPRAZOLE
     Dosage: 1 TABLET DAILY
  4. ENBREL [Suspect]
     Active Substance: ETANERCEPT
     Indication: RHEUMATOID ARTHRITIS
     Dosage: 50 MG, QWK
     Route: 065
     Dates: start: 201506

REACTIONS (11)
  - Osteoarthritis [Unknown]
  - Arthralgia [Unknown]
  - Surgery [Unknown]
  - Gallbladder enlargement [Unknown]
  - Malaise [Unknown]
  - Weight bearing difficulty [Unknown]
  - Cholelithiasis [Unknown]
  - Fibromyalgia [Unknown]
  - Abdominal pain upper [Unknown]
  - Gastric ulcer [Unknown]
  - Injection site pain [Unknown]

NARRATIVE: CASE EVENT DATE: 2015
